FAERS Safety Report 15145629 (Version 1)
Quarter: 2018Q3

REPORT INFORMATION
  Report Type: Spontaneous
  Country: US (occurrence: US)
  Receive Date: 20180713
  Receipt Date: 20180713
  Transmission Date: 20181010
  Serious: No
  Sender: FDA-Public Use
  Company Number: US-JNJFOC-20180639629

PATIENT
  Age: 39 Year
  Sex: Male
  Weight: 113.4 kg

DRUGS (3)
  1. XARELTO [Suspect]
     Active Substance: RIVAROXABAN
     Indication: PULMONARY EMBOLISM
     Route: 048
     Dates: start: 201805
  2. L?ARGININE HYDROCHLORIDE [Concomitant]
     Route: 065
  3. CHONDROITIN W/GLUCOSAMINE [Concomitant]
     Route: 065

REACTIONS (2)
  - Myalgia [Not Recovered/Not Resolved]
  - Drug diversion [Unknown]

NARRATIVE: CASE EVENT DATE: 20180625
